FAERS Safety Report 10592881 (Version 1)
Quarter: 2014Q4

REPORT INFORMATION
  Report Type: Spontaneous
  Country: US (occurrence: None)
  Receive Date: 20141118
  Receipt Date: 20141118
  Transmission Date: 20150529
  Serious: No
  Sender: FDA-Public Use
  Company Number: None

PATIENT
  Age: 35 Year
  Sex: Female
  Weight: 69.85 kg

DRUGS (1)
  1. TECFIDERA [Suspect]
     Active Substance: DIMETHYL FUMARATE
     Indication: RELAPSING-REMITTING MULTIPLE SCLEROSIS
     Dosage: (1 PILL)
     Route: 048
     Dates: start: 20130701, end: 20141117

REACTIONS (6)
  - Headache [None]
  - White blood cell count decreased [None]
  - Ear disorder [None]
  - Impaired healing [None]
  - Rhinorrhoea [None]
  - Flatulence [None]
